FAERS Safety Report 8372106-6 (Version None)
Quarter: 2012Q2

REPORT INFORMATION
  Report Type: 
  Country: None (occurrence: None)
  Receive Date: 20120521
  Receipt Date: 20120514
  Transmission Date: 20120825
  Serious: Yes (Hospitalization)
  Sender: FDA-Public Use
  Company Number: US-AMGEN-USASP2012030211

PATIENT
  Age: 64 Year
  Sex: Female

DRUGS (2)
  1. ENBREL [Suspect]
     Indication: JUVENILE ARTHRITIS
  2. ENBREL [Suspect]
     Indication: RHEUMATOID ARTHRITIS
     Dosage: 50 MG, QWK
     Dates: start: 20000223

REACTIONS (18)
  - THERAPEUTIC RESPONSE DECREASED [None]
  - PULMONARY HYPERTENSION [None]
  - ANAEMIA [None]
  - OSTEOARTHRITIS [None]
  - UPPER LIMB FRACTURE [None]
  - ROAD TRAFFIC ACCIDENT [None]
  - WRIST DEFORMITY [None]
  - HUMERUS FRACTURE [None]
  - CARDIAC FAILURE [None]
  - TENDON DISORDER [None]
  - RHEUMATOID ARTHRITIS [None]
  - FATIGUE [None]
  - STAPHYLOCOCCAL INFECTION [None]
  - DEAFNESS [None]
  - FALL [None]
  - INJECTION SITE PAIN [None]
  - DEVICE FAILURE [None]
  - LIMB ASYMMETRY [None]
